FAERS Safety Report 7223164-3 (Version None)
Quarter: 2011Q1

REPORT INFORMATION
  Report Type: 
  Country: None (occurrence: None)
  Receive Date: 20110112
  Receipt Date: 20100210
  Transmission Date: 20110831
  Serious: No
  Sender: FDA-Public Use
  Company Number: US-ALLERGAN-1001681US

PATIENT
  Age: 75 Year
  Sex: Female

DRUGS (4)
  1. OMNARIS [Concomitant]
     Indication: SINUS DISORDER
     Dosage: UNK
     Dates: start: 20100107
  2. RESTASIS [Suspect]
     Indication: DRY EYE
     Dosage: 1 GTT, BID
     Route: 047
     Dates: start: 20091222
  3. RESTASIS [Suspect]
     Dosage: 1 GTT, QD
     Route: 047
  4. NASONEX [Concomitant]
     Indication: SINUS DISORDER
     Dosage: UNK
     Dates: end: 20100107

REACTIONS (1)
  - EYE IRRITATION [None]
